FAERS Safety Report 6552732-7 (Version None)
Quarter: 2010Q1

REPORT INFORMATION
  Report Type: 
  Country: None (occurrence: None)
  Receive Date: 20100121
  Receipt Date: 20100111
  Transmission Date: 20100710
  Serious: Yes (Death)
  Sender: FDA-Public Use
  Company Number: 004569

PATIENT
  Age: 51 Year
  Sex: Male

DRUGS (6)
  1. ALPRAZOLAM [Suspect]
  2. PROPOXYPHENE HCL [Suspect]
  3. ETHANOL [Suspect]
  4. PHENOBARBITAL TAB [Concomitant]
  5. ZOLPIDEM [Concomitant]
  6. LORAZEPAM [Concomitant]

REACTIONS (1)
  - COMPLETED SUICIDE [None]
